FAERS Safety Report 24557750 (Version 2)
Quarter: 2025Q2

REPORT INFORMATION
  Report Type: Spontaneous
  Country: DK (occurrence: DK)
  Receive Date: 20241028
  Receipt Date: 20250521
  Transmission Date: 20250716
  Serious: Yes (Death, Life-Threatening, Hospitalization, Other)
  Sender: MYLAN
  Company Number: DK-ORIFARM-032318

PATIENT
  Sex: Female

DRUGS (7)
  1. SERTRALINE [Suspect]
     Active Substance: SERTRALINE HYDROCHLORIDE
     Indication: Systemic lupus erythematosus
  2. SERTRALINE [Suspect]
     Active Substance: SERTRALINE HYDROCHLORIDE
     Indication: Anxiety
  3. AZATHIOPRINE [Suspect]
     Active Substance: AZATHIOPRINE
     Indication: Systemic lupus erythematosus
  4. AZATHIOPRINE [Suspect]
     Active Substance: AZATHIOPRINE
  5. PREDNISOLONE [Suspect]
     Active Substance: PREDNISOLONE
     Indication: Systemic lupus erythematosus
     Dosage: UNK (LOW-DOSE PREDNISOLONE (MORE THAN OR EQUAL TO 5 MG/DAY FOR THE LAST 10 YEARS))
  6. PREDNISOLONE [Suspect]
     Active Substance: PREDNISOLONE
  7. PEMBROLIZUMAB [Suspect]
     Active Substance: PEMBROLIZUMAB
     Indication: Progressive multifocal leukoencephalopathy

REACTIONS (5)
  - Progressive multifocal leukoencephalopathy [Fatal]
  - Malignant glioma [Fatal]
  - Drug ineffective [Fatal]
  - Lymphopenia [Recovering/Resolving]
  - Urinary tract infection [Unknown]
